FAERS Safety Report 17551027 (Version 1)
Quarter: 2020Q1

REPORT INFORMATION
  Report Type: Spontaneous
  Country: US (occurrence: US)
  Receive Date: 20200309
  Receipt Date: 20200309
  Transmission Date: 20200409
  Serious: Yes (Hospitalization)
  Sender: FDA-Public Use
  Company Number: None

PATIENT
  Age: 35 Year
  Sex: Male
  Weight: 87.2 kg

DRUGS (13)
  1. GABAPENTIN. [Concomitant]
     Active Substance: GABAPENTIN
  2. TADALFAIL [Concomitant]
  3. TRIAMCINOLONE [Concomitant]
     Active Substance: TRIAMCINOLONE
  4. BUPROPION. [Concomitant]
     Active Substance: BUPROPION
  5. VALACYCLOVIR [Concomitant]
     Active Substance: VALACYCLOVIR HYDROCHLORIDE
  6. MULTIVITAMIN [Concomitant]
     Active Substance: VITAMINS
  7. OXYCODONE [Concomitant]
     Active Substance: OXYCODONE
  8. DEXAMETHASONE. [Concomitant]
     Active Substance: DEXAMETHASONE
  9. CLOBETASOL [Concomitant]
     Active Substance: CLOBETASOL
  10. ATOVAQUONE. [Concomitant]
     Active Substance: ATOVAQUONE
  11. EVEROLIMUS 5MG TABLET [Suspect]
     Active Substance: EVEROLIMUS
     Indication: HODGKIN^S DISEASE
     Route: 048
     Dates: start: 20191202
  12. PREDNISONE. [Concomitant]
     Active Substance: PREDNISONE
  13. ITACITANIB 100MG TABLET [Suspect]
     Active Substance: ITACITINIB
     Indication: HODGKIN^S DISEASE
     Route: 048
     Dates: start: 20191202

REACTIONS (5)
  - Pyrexia [None]
  - Chills [None]
  - Tachycardia [None]
  - Tachypnoea [None]
  - Influenza A virus test positive [None]

NARRATIVE: CASE EVENT DATE: 20200308
